FAERS Safety Report 9543028 (Version 1)
Quarter: 2013Q3

REPORT INFORMATION
  Report Type: Report from Study
  Country: US (occurrence: US)
  Receive Date: 20130923
  Receipt Date: 20130923
  Transmission Date: 20140515
  Serious: Yes (Hospitalization)
  Sender: FDA-Public Use
  Company Number: PHHO2013US011999

PATIENT
  Age: 56 Year
  Sex: Female

DRUGS (15)
  1. IBUPROFEN [Suspect]
     Indication: HEADACHE
     Dosage: 800 MG, PRN
     Route: 048
     Dates: start: 20071119
  2. IBUPROFEN [Suspect]
     Indication: PAIN
  3. GLATIRAMER [Suspect]
     Indication: RELAPSING-REMITTING MULTIPLE SCLEROSIS
     Dosage: 20 MG, QD
     Route: 058
     Dates: start: 20130104, end: 20130903
  4. GLATIRAMER [Suspect]
     Dosage: 20 MG, QD
     Route: 058
     Dates: start: 20130906
  5. ABILIFY [Concomitant]
     Indication: DEPRESSION
     Dosage: 10 MG, QD
     Route: 048
     Dates: start: 20120111
  6. ADDERALL [Concomitant]
     Indication: DISTURBANCE IN ATTENTION
     Dosage: 20 MG, BID
     Route: 048
     Dates: start: 20080418
  7. ASTELIN [Concomitant]
     Indication: HYPERSENSITIVITY
     Dosage: 137 UG, PRN
     Route: 045
     Dates: start: 20101005
  8. CYMBALTA [Concomitant]
     Indication: DEPRESSION
     Dosage: 60 MG, QD
     Route: 048
     Dates: start: 20100329
  9. CYMBALTA [Concomitant]
     Indication: ANXIETY
  10. INDERAL [Concomitant]
     Indication: HYPERTENSION
     Dosage: 80 MG, QD
     Route: 048
     Dates: start: 20071119
  11. LUNESTA [Concomitant]
     Indication: INSOMNIA
     Dosage: 3 MG, QHS
     Route: 048
     Dates: start: 20091001
  12. MAXALT [Concomitant]
     Indication: HEADACHE
     Dosage: 10 MG, PRN
     Route: 048
     Dates: start: 20090323
  13. OMEPRAZOLE [Concomitant]
     Indication: GASTROOESOPHAGEAL REFLUX DISEASE
     Dosage: 40 MG, QD
     Route: 048
     Dates: start: 20101005
  14. PHENERGAN                          /00404701/ [Concomitant]
     Indication: NAUSEA
     Dosage: 25 MG, PRN
     Route: 048
     Dates: start: 20100329
  15. ATORVASTATIN [Concomitant]
     Indication: HYPERCHOLESTEROLAEMIA
     Dosage: 20 MG, QD
     Route: 048
     Dates: start: 20130328

REACTIONS (1)
  - Diverticulitis [Recovering/Resolving]
